FAERS Safety Report 12828387 (Version 1)
Quarter: 2016Q4

REPORT INFORMATION
  Report Type: Spontaneous
  Country: US (occurrence: US)
  Receive Date: 20161007
  Receipt Date: 20161007
  Transmission Date: 20170207
  Serious: Yes (Hospitalization)
  Sender: FDA-Public Use
  Company Number: US-PFIZER INC-2016206681

PATIENT
  Age: 72 Year
  Sex: Male
  Weight: 75 kg

DRUGS (6)
  1. ASPIRIN 81 [Concomitant]
     Active Substance: ASPIRIN
     Indication: CARDIAC DISORDER
     Dosage: 81 MG, DAILY
  2. SUTENT [Suspect]
     Active Substance: SUNITINIB MALATE
     Indication: AESTHESIONEUROBLASTOMA
     Dosage: 25 MG, 1X/DAY (12.5 MG, 2 CAPSULES 1 TIME PER DAY WITH OR WITHOUT FOOD)
     Route: 048
     Dates: start: 20160513
  3. SUTENT [Suspect]
     Active Substance: SUNITINIB MALATE
     Indication: NEUROBLASTOMA
     Dosage: 37.5 MG, ONCE A DAY (12.5MG, 3 CAPS 1 TIME, TAKEN DAILY WITH OR WITHOUT FOOD)
     Route: 048
     Dates: start: 20160408
  4. SUTENT [Suspect]
     Active Substance: SUNITINIB MALATE
     Indication: HEPATIC CANCER
     Dosage: 37.5 MG, DAILY (12.5MG THREE CAPSULES BY MOUTH DAILY)
     Route: 048
     Dates: start: 20160315
  5. POTASSIUM [Concomitant]
     Active Substance: POTASSIUM
     Indication: BLOOD POTASSIUM DECREASED
     Dosage: 20 MG, 2X/DAY
     Route: 048
  6. PLAVIX [Concomitant]
     Active Substance: CLOPIDOGREL BISULFATE
     Indication: COAGULOPATHY
     Dosage: 75 MG, 1X/DAY
     Route: 048
     Dates: start: 201405

REACTIONS (6)
  - Blood disorder [Recovered/Resolved]
  - Feeling abnormal [Recovering/Resolving]
  - Fatigue [Unknown]
  - Liver disorder [Unknown]
  - Condition aggravated [Unknown]
  - Product use issue [Unknown]
